FAERS Safety Report 10504817 (Version 1)
Quarter: 2014Q3

REPORT INFORMATION
  Report Type: Spontaneous
  Country: US (occurrence: None)
  Receive Date: 20140929
  Receipt Date: 20140929
  Transmission Date: 20150326
  Serious: Yes (Life-Threatening, Hospitalization, Other)
  Sender: FDA-Public Use
  Company Number: US-2014-11852

PATIENT
  Age: 27 Year
  Sex: Male

DRUGS (4)
  1. PAXIL [Concomitant]
     Active Substance: PAROXETINE HYDROCHLORIDE
  2. COGENTIN [Concomitant]
     Active Substance: BENZTROPINE MESYLATE
  3. ABILIFY MAINTENA [Suspect]
     Active Substance: ARIPIPRAZOLE
     Indication: SCHIZOPHRENIA
     Dosage: 400MG SINGLE, IM (DEPOT)
     Dates: end: 20140623
  4. PIROXICAM. [Concomitant]
     Active Substance: PIROXICAM

REACTIONS (4)
  - Neuroleptic malignant syndrome [None]
  - Temperature intolerance [None]
  - Dyspnoea [None]
  - Anxiety [None]

NARRATIVE: CASE EVENT DATE: 2014
